FAERS Safety Report 19080161 (Version 1)
Quarter: 2021Q1

REPORT INFORMATION
  Report Type: Report from Study
  Country: US (occurrence: US)
  Receive Date: 20210331
  Receipt Date: 20210331
  Transmission Date: 20210420
  Serious: Yes (Hospitalization)
  Sender: FDA-Public Use
  Company Number: US-EXELIXIS-CABO-21036888

PATIENT
  Age: 51 Year
  Sex: Male

DRUGS (1)
  1. CABOMETYX [Suspect]
     Active Substance: CABOZANTINIB S-MALATE
     Indication: RENAL CANCER
     Dosage: 40 MG, QD
     Route: 048
     Dates: start: 202101

REACTIONS (4)
  - Blister [Unknown]
  - Diarrhoea [Unknown]
  - Nail infection [Unknown]
  - Secretion discharge [Unknown]

NARRATIVE: CASE EVENT DATE: 202101
